FAERS Safety Report 6161945-8 (Version None)
Quarter: 2009Q2

REPORT INFORMATION
  Report Type: 
  Country: None (occurrence: None)
  Receive Date: 20090421
  Receipt Date: 20090414
  Transmission Date: 20091009
  Serious: Yes (Other)
  Sender: FDA-Public Use
  Company Number: US-ASTRAZENECA-2009UW09367

PATIENT
  Age: 66 Year
  Sex: Male

DRUGS (2)
  1. PULMICORT RESPULES [Suspect]
     Indication: CHRONIC OBSTRUCTIVE PULMONARY DISEASE
     Route: 055
  2. PULMICORT RESPULES [Suspect]
     Indication: EMPHYSEMA
     Route: 055

REACTIONS (2)
  - COUGH [None]
  - LOSS OF CONSCIOUSNESS [None]
